FAERS Safety Report 4685290-2 (Version None)
Quarter: 2005Q2

REPORT INFORMATION
  Report Type: 
  Country: None (occurrence: None)
  Receive Date: 20050603
  Receipt Date: 20050523
  Transmission Date: 20051028
  Serious: Yes (Disabling)
  Sender: FDA-Public Use
  Company Number: 2005079700

PATIENT
  Age: 86 Year
  Sex: Female
  Weight: 59 kg

DRUGS (15)
  1. LYRICA [Suspect]
     Indication: POLYNEUROPATHY
     Dosage: 150 MG (75 MG, 2 IN 1 D); ORAL
     Route: 048
     Dates: start: 20050225, end: 20050507
  2. WARFARIN SODIUM [Concomitant]
  3. DIGOXIN [Concomitant]
  4. CALCIUM WITH VITAMIN D (CALCIUM PHOSPHATE, CALCIUM SODIUM LACTATE, ERG [Concomitant]
  5. ISMN ^GENERICON^ (ISOSORBIDE MONONITRATE) [Concomitant]
  6. ALLOPURINOL [Concomitant]
  7. GAVISON (SODIUM ALGINATE, SODIUM BICARBONATE) [Concomitant]
  8. GTN (GLYCERYL TRINITRATE) [Concomitant]
  9. FUROSEMIDE [Concomitant]
  10. CITALOPRAM [Concomitant]
  11. FERROUS SULFATE TAB [Concomitant]
  12. OMEPRAZOLE [Concomitant]
  13. PRAVASTATIN [Concomitant]
  14. PARACETAMOL [Concomitant]
  15. AMLODIPINE [Concomitant]

REACTIONS (3)
  - FALL [None]
  - IMMOBILE [None]
  - TREMOR [None]
